FAERS Safety Report 24662415 (Version 5)
Quarter: 2025Q4

REPORT INFORMATION
  Report Type: Report from Study
  Country: US (occurrence: US)
  Receive Date: 20241125
  Receipt Date: 20251126
  Transmission Date: 20260118
  Serious: Yes (Other)
  Sender: TAKEDA
  Company Number: US-TAKEDA-2024TUS117989

PATIENT
  Age: 69 Year
  Sex: Female
  Weight: 58 kg

DRUGS (2)
  1. GLASSIA [Suspect]
     Active Substance: .ALPHA.1-PROTEINASE INHIBITOR HUMAN
     Indication: Alpha-1 antitrypsin deficiency
     Dosage: UNK
  2. GLASSIA [Suspect]
     Active Substance: .ALPHA.1-PROTEINASE INHIBITOR HUMAN
     Dosage: 60 MILLIGRAM/KILOGRAM, 1/WEEK

REACTIONS (9)
  - Chest injury [Recovering/Resolving]
  - Rotator cuff syndrome [Unknown]
  - Fall [Unknown]
  - Blood iron decreased [Unknown]
  - Neuralgia [Unknown]
  - Product dose omission issue [Unknown]
  - Periarthritis [Unknown]
  - Contusion [Unknown]
  - Migraine [Unknown]
